FAERS Safety Report 17651345 (Version 3)
Quarter: 2020Q3

REPORT INFORMATION
  Report Type: Spontaneous
  Country: HR (occurrence: HR)
  Receive Date: 20200409
  Receipt Date: 20200715
  Transmission Date: 20201102
  Serious: Yes (Life-Threatening, Hospitalization, Other)
  Sender: FDA-Public Use
  Company Number: HR-009507513-2004HRV002401

PATIENT
  Sex: Female
  Weight: 99 kg

DRUGS (1)
  1. KEYTRUDA [Suspect]
     Active Substance: PEMBROLIZUMAB
     Indication: METASTATIC MALIGNANT MELANOMA
     Dosage: 200 MILLIGRAM EVERY 3 WEEKS
     Dates: start: 20200124, end: 20200320

REACTIONS (34)
  - Bundle branch block left [Unknown]
  - Lymph node palpable [Unknown]
  - Melanoma recurrent [Unknown]
  - Protein total decreased [Unknown]
  - Faeces soft [Unknown]
  - Visual impairment [Recovering/Resolving]
  - Lymphadenopathy [Unknown]
  - Paraesthesia [Unknown]
  - Diplopia [Recovering/Resolving]
  - Fracture displacement [Unknown]
  - Bone density decreased [Unknown]
  - Lymphocyte percentage decreased [Unknown]
  - Pelvic fracture [Unknown]
  - Malignant peritoneal neoplasm [Unknown]
  - Malignant neoplasm progression [Unknown]
  - Osteolysis [Unknown]
  - Osteoarthritis [Unknown]
  - Osteochondrosis [Unknown]
  - VIth nerve injury [Unknown]
  - C-reactive protein increased [Unknown]
  - Blood urea increased [Unknown]
  - VIth nerve paralysis [Unknown]
  - Dysstasia [Unknown]
  - Blood alkaline phosphatase decreased [Unknown]
  - Blood fibrinogen increased [Unknown]
  - Polyuria [Unknown]
  - Activated partial thromboplastin time shortened [Unknown]
  - Blood glucose increased [Unknown]
  - Neurotoxicity [Unknown]
  - Pain in extremity [Unknown]
  - Movement disorder [Unknown]
  - Gamma-glutamyltransferase increased [Unknown]
  - Neutrophil percentage increased [Unknown]
  - Spinal flattening [Unknown]

NARRATIVE: CASE EVENT DATE: 2020
